FAERS Safety Report 15952446 (Version 2)
Quarter: 2019Q1

REPORT INFORMATION
  Report Type: Spontaneous
  Country: US (occurrence: US)
  Receive Date: 20190212
  Receipt Date: 20190214
  Transmission Date: 20190417
  Serious: No
  Sender: FDA-Public Use
  Company Number: US-PFIZER INC-2019050862

PATIENT
  Age: 69 Year
  Sex: Female
  Weight: 65.77 kg

DRUGS (1)
  1. PRISTIQ EXTENDED-RELEASE [Suspect]
     Active Substance: DESVENLAFAXINE SUCCINATE
     Dosage: 25 MG, DAILY
     Dates: start: 20190129

REACTIONS (6)
  - Sleep disorder [Unknown]
  - Malaise [Unknown]
  - Nervousness [Unknown]
  - Fatigue [Unknown]
  - Decreased appetite [Not Recovered/Not Resolved]
  - Feeling jittery [Unknown]

NARRATIVE: CASE EVENT DATE: 20190131
